FAERS Safety Report 4975692-9 (Version None)
Quarter: 2006Q2

REPORT INFORMATION
  Report Type: 
  Country: None (occurrence: None)
  Receive Date: 20060411
  Receipt Date: 20060406
  Transmission Date: 20061013
  Serious: Yes (Other)
  Sender: FDA-Public Use
  Company Number: 144809USA

PATIENT
  Age: 36 Year
  Sex: Female

DRUGS (6)
  1. COPAXONE [Suspect]
     Indication: MULTIPLE SCLEROSIS
     Dosage: 20 MILLIGRAM QD SUBCUTANEOUS
     Route: 058
     Dates: start: 20031113, end: 20050515
  2. BACLOFEN [Concomitant]
  3. NEURONTIN [Concomitant]
  4. WELLBUTRIN [Concomitant]
  5. CENESTIN [Concomitant]
  6. ESTRATEST [Concomitant]

REACTIONS (6)
  - ATROPHY [None]
  - INJECTION SITE NECROSIS [None]
  - INJECTION SITE PRURITUS [None]
  - INJECTION SITE VESICLES [None]
  - SCAR [None]
  - SKIN ULCER [None]
